FAERS Safety Report 6772264-0 (Version None)
Quarter: 2010Q2

REPORT INFORMATION
  Report Type: 
  Country: None (occurrence: None)
  Receive Date: 20100616
  Receipt Date: 20090814
  Transmission Date: 20101027
  Serious: No
  Sender: FDA-Public Use
  Company Number: US-ASTRAZENECA-2009SE08144

PATIENT
  Sex: Female

DRUGS (6)
  1. PULMICORT RESPULES [Suspect]
     Dosage: 0.5 MG/ML
     Route: 055
     Dates: start: 20090401
  2. WELLBUTRIN [Concomitant]
  3. LORAZEPAM [Concomitant]
  4. OMEPRAZOLE [Concomitant]
  5. URECHOLINE [Concomitant]
  6. VITAMIN B-12 [Concomitant]

REACTIONS (3)
  - COUGH [None]
  - DYSGEUSIA [None]
  - VISUAL IMPAIRMENT [None]
